FAERS Safety Report 9980007 (Version 1)
Quarter: 2014Q1

REPORT INFORMATION
  Report Type: Report from Study
  Country: US (occurrence: US)
  Receive Date: 20140307
  Receipt Date: 20140307
  Transmission Date: 20141002
  Serious: No
  Sender: FDA-Public Use
  Company Number: US-ABBVIE-13P-163-1176153-00

PATIENT
  Age: 53 Year
  Sex: Male

DRUGS (10)
  1. HUMIRA [Suspect]
     Indication: PSORIATIC ARTHROPATHY
     Dates: start: 20130626
  2. METHOCARBAMOL [Concomitant]
     Indication: MUSCLE RELAXANT THERAPY
     Dosage: AS NEEDED
  3. OXYCODONE [Concomitant]
     Indication: PAIN
     Dosage: AS NEEDED
  4. TRIAM HTZ [Concomitant]
     Indication: CARDIOVASCULAR EVENT PROPHYLAXIS
  5. ATENOLOL [Concomitant]
     Indication: CARDIOVASCULAR EVENT PROPHYLAXIS
  6. AMBIEN [Concomitant]
     Indication: INSOMNIA
     Dosage: AT BEDTIME
  7. LOVAZA [Concomitant]
     Indication: PRODUCT USED FOR UNKNOWN INDICATION
  8. MAGNESIUM [Concomitant]
     Indication: PRODUCT USED FOR UNKNOWN INDICATION
  9. NIACIN [Concomitant]
     Indication: VITAMIN SUPPLEMENTATION
  10. MILK THISTLE [Concomitant]
     Indication: NUTRITIONAL SUPPLEMENTATION

REACTIONS (6)
  - Feeling abnormal [Not Recovered/Not Resolved]
  - Hyperhidrosis [Not Recovered/Not Resolved]
  - Feeling abnormal [Not Recovered/Not Resolved]
  - Nervousness [Not Recovered/Not Resolved]
  - Injection site pain [Not Recovered/Not Resolved]
  - Blood pressure abnormal [Not Recovered/Not Resolved]
